FAERS Safety Report 12331169 (Version 4)
Quarter: 2017Q1

REPORT INFORMATION
  Report Type: Spontaneous
  Country: RS (occurrence: RS)
  Receive Date: 20160504
  Receipt Date: 20170313
  Transmission Date: 20170428
  Serious: Yes (Hospitalization, Disabling, Other)
  Sender: FDA-Public Use
  Company Number: RS-009507513-1604SRB015668

PATIENT
  Age: 53 Year
  Sex: Female
  Weight: 51 kg

DRUGS (4)
  1. REMERON [Suspect]
     Active Substance: MIRTAZAPINE
     Indication: ANOREXIA NERVOSA
     Dosage: HALF TABLET, EVERY NIGHT
     Route: 048
     Dates: start: 201304, end: 2013
  2. LUDIOMIL [Concomitant]
     Active Substance: MAPROTILINE HYDROCHLORIDE
     Indication: ANOREXIA NERVOSA
     Dosage: UNK
     Route: 048
     Dates: end: 201304
  3. REMERON [Suspect]
     Active Substance: MIRTAZAPINE
     Indication: OBSESSIVE-COMPULSIVE DISORDER
  4. LUDIOMIL [Concomitant]
     Active Substance: MAPROTILINE HYDROCHLORIDE
     Indication: DEPRESSION
     Dosage: 25 MG, QAM
     Route: 048
     Dates: start: 2013

REACTIONS (7)
  - Hyperhidrosis [Unknown]
  - Light chain disease [Not Recovered/Not Resolved]
  - Plasma cell myeloma [Not Recovered/Not Resolved]
  - Fear [Unknown]
  - Feeling abnormal [Not Recovered/Not Resolved]
  - Intervertebral disc protrusion [Unknown]
  - Product use issue [Unknown]

NARRATIVE: CASE EVENT DATE: 2013
